FAERS Safety Report 19737807 (Version 1)
Quarter: 2021Q3

REPORT INFORMATION
  Report Type: Spontaneous
  Country: IT (occurrence: IT)
  Receive Date: 20210824
  Receipt Date: 20210824
  Transmission Date: 20211014
  Serious: Yes (Other)
  Sender: FDA-Public Use
  Company Number: IT-009507513-2108ITA004662

PATIENT
  Age: 69 Year
  Sex: Female
  Weight: 72 kg

DRUGS (3)
  1. PEMETREXED DISODIUM [Suspect]
     Active Substance: PEMETREXED DISODIUM
     Indication: LUNG ADENOCARCINOMA
     Dosage: 890 MILLIGRAM, CYCLICAL
     Route: 042
     Dates: start: 20210617, end: 20210617
  2. KEYTRUDA [Suspect]
     Active Substance: PEMBROLIZUMAB
     Indication: LUNG ADENOCARCINOMA
     Dosage: 200 MILLIGRAM, CYCLICAL, FORMULATION: CONCENTRATE FOR SOLUTION FOR INFUSION
     Route: 042
     Dates: start: 20210617, end: 20210617
  3. CARBOPLATIN. [Suspect]
     Active Substance: CARBOPLATIN
     Indication: LUNG ADENOCARCINOMA
     Dosage: 532.8 MILLIGRAM, CYCLICAL
     Route: 042
     Dates: start: 20210617, end: 20210617

REACTIONS (1)
  - Neutropenia [Recovering/Resolving]

NARRATIVE: CASE EVENT DATE: 20210706
